FAERS Safety Report 5756260-8 (Version None)
Quarter: 2008Q2

REPORT INFORMATION
  Report Type: 
  Country: None (occurrence: None)
  Receive Date: 20080602
  Receipt Date: 20080521
  Transmission Date: 20081010
  Serious: Yes (Other)
  Sender: FDA-Public Use
  Company Number: US-PFIZER INC-2008044626

PATIENT
  Sex: Female

DRUGS (2)
  1. LYRICA [Suspect]
     Indication: PAIN
     Dosage: DAILY DOSE:150MG-FREQ:EVERYDAY
  2. ALL OTHER THERAPEUTIC PRODUCTS [Suspect]
     Route: 042

REACTIONS (2)
  - BLOOD PRESSURE DECREASED [None]
  - ROTATOR CUFF REPAIR [None]
